FAERS Safety Report 21989162 (Version 1)
Quarter: 2023Q1

REPORT INFORMATION
  Report Type: Spontaneous
  Country: CA (occurrence: None)
  Receive Date: 20230214
  Receipt Date: 20230214
  Transmission Date: 20230417
  Serious: Yes (Other)
  Sender: FDA-Public Use
  Company Number: CA-PFIZER INC-202300063877

PATIENT
  Age: 60 Year
  Sex: Female

DRUGS (5)
  1. METHOTREXATE [Suspect]
     Active Substance: METHOTREXATE
     Indication: Rheumatoid arthritis
     Route: 065
     Dates: start: 2020, end: 2022
  2. COSENTYX [Concomitant]
     Active Substance: SECUKINUMAB
     Route: 065
  3. ENBREL [Concomitant]
     Active Substance: ETANERCEPT
     Route: 065
  4. REMICADE [Concomitant]
     Active Substance: INFLIXIMAB
     Route: 065
  5. XELJANZ [Concomitant]
     Active Substance: TOFACITINIB CITRATE
     Route: 065
     Dates: start: 2020, end: 2022

REACTIONS (4)
  - Drug ineffective [Unknown]
  - Lung neoplasm malignant [Unknown]
  - Systemic lupus erythematosus [Unknown]
  - Pituitary-dependent Cushing^s syndrome [Unknown]

NARRATIVE: CASE EVENT DATE: 20220101
